FAERS Safety Report 21178203 (Version 1)
Quarter: 2022Q3

REPORT INFORMATION
  Report Type: Spontaneous
  Country: FI (occurrence: FI)
  Receive Date: 20220805
  Receipt Date: 20220805
  Transmission Date: 20221027
  Serious: Yes (Other)
  Sender: FDA-Public Use
  Company Number: None

PATIENT
  Age: 32 Year
  Sex: Female

DRUGS (1)
  1. MIRENA [Suspect]
     Active Substance: LEVONORGESTREL
     Indication: Contraception
     Dosage: 20?G/DAY
     Route: 015
     Dates: start: 20170509, end: 20220603

REACTIONS (3)
  - Device expulsion [Unknown]
  - Pregnancy with contraceptive device [Unknown]
  - Abortion induced [Unknown]

NARRATIVE: CASE EVENT DATE: 20220519
